FAERS Safety Report 5325713-9 (Version None)
Quarter: 2007Q2

REPORT INFORMATION
  Report Type: 
  Country: None (occurrence: None)
  Receive Date: 20070509
  Receipt Date: 20070427
  Transmission Date: 20071010
  Serious: Yes (Hospitalization)
  Sender: FDA-Public Use
  Company Number: 233005K06USA

PATIENT
  Age: 49 Year
  Sex: Male
  Weight: 81.6475 kg

DRUGS (12)
  1. REBIF [Suspect]
     Indication: MULTIPLE SCLEROSIS
     Dosage: 44 MCG, 3 IN 1 WEEKS
     Dates: start: 20050501
  2. COLAZAL (BALSALAZIDE SODIUM) [Concomitant]
  3. LEVSINEX (HYOSCYAMINE SULFATE) [Concomitant]
  4. LAMICTAL [Concomitant]
  5. IMURAN [Concomitant]
  6. MAXZIDE-25 (DYAZIDE) [Concomitant]
  7. LIPITOR [Concomitant]
  8. PROMETHAZINE [Concomitant]
  9. ALEVE [Concomitant]
  10. REVIA [Concomitant]
  11. VALIUM [Concomitant]
  12. SCOPOLAMINE PATCH (HYOSCINE /00008701/) [Concomitant]

REACTIONS (5)
  - HERPES ZOSTER [None]
  - HYPERAESTHESIA [None]
  - INFECTION IN AN IMMUNOCOMPROMISED HOST [None]
  - PAIN [None]
  - RASH PUSTULAR [None]
